FAERS Safety Report 15616524 (Version 5)
Quarter: 2019Q1

REPORT INFORMATION
  Report Type: Spontaneous
  Country: US (occurrence: US)
  Receive Date: 20181114
  Receipt Date: 20190227
  Transmission Date: 20190417
  Serious: No
  Sender: FDA-Public Use
  Company Number: US-ASTRAZENECA-2018SF43237

PATIENT
  Sex: Female

DRUGS (3)
  1. BYDUREON [Suspect]
     Active Substance: EXENATIDE
     Indication: TYPE 2 DIABETES MELLITUS
     Route: 058
     Dates: start: 201809
  2. METFORMIN [Concomitant]
     Active Substance: METFORMIN HYDROCHLORIDE
     Indication: TYPE 2 DIABETES MELLITUS
     Route: 048
  3. BYDUREON BCISE [Suspect]
     Active Substance: EXENATIDE
     Indication: TYPE 2 DIABETES MELLITUS
     Route: 058
     Dates: start: 201809

REACTIONS (9)
  - Intentional device misuse [Unknown]
  - Injection site scab [Recovering/Resolving]
  - Wrong technique in product usage process [Unknown]
  - Feeling abnormal [Unknown]
  - Device leakage [Unknown]
  - Circumstance or information capable of leading to medication error [Unknown]
  - Malaise [Unknown]
  - Wrong technique in device usage process [Unknown]
  - Injection site mass [Recovering/Resolving]
